FAERS Safety Report 7175212-7 (Version None)
Quarter: 2010Q4

REPORT INFORMATION
  Report Type: 
  Country: None (occurrence: None)
  Receive Date: 20101220
  Receipt Date: 20100227
  Transmission Date: 20110411
  Serious: No
  Sender: FDA-Public Use
  Company Number: US-AMGEN-TCS395896

PATIENT

DRUGS (2)
  1. ENBREL [Suspect]
     Indication: RHEUMATOID ARTHRITIS
     Dosage: 50 MG, QWK
     Route: 058
     Dates: start: 20080530
  2. METHOTREXATE [Concomitant]
     Dosage: 25 MG, QWK
     Route: 058
     Dates: start: 20080530

REACTIONS (5)
  - BEDRIDDEN [None]
  - DRUG INEFFECTIVE [None]
  - GAIT DISTURBANCE [None]
  - PAIN [None]
  - RHEUMATOID ARTHRITIS [None]
